FAERS Safety Report 19890293 (Version 1)
Quarter: 2021Q3

REPORT INFORMATION
  Report Type: Spontaneous
  Country: VN (occurrence: VN)
  Receive Date: 20210927
  Receipt Date: 20210927
  Transmission Date: 20211014
  Serious: Yes (Death, Other)
  Sender: FDA-Public Use
  Company Number: VN-ROCHE-2918323

PATIENT
  Age: 62 Year
  Sex: Female

DRUGS (2)
  1. INSULIN INJECTION [Concomitant]
     Active Substance: INSULIN NOS
  2. ACTEMRA [Suspect]
     Active Substance: TOCILIZUMAB
     Indication: COVID-19
     Route: 041

REACTIONS (3)
  - Off label use [Unknown]
  - Death [Fatal]
  - Cytokine storm [Unknown]

NARRATIVE: CASE EVENT DATE: 20210922
